FAERS Safety Report 8331080-9 (Version None)
Quarter: 2012Q2

REPORT INFORMATION
  Report Type: 
  Country: None (occurrence: None)
  Receive Date: 20120502
  Receipt Date: 20120423
  Transmission Date: 20120825
  Serious: Yes (Hospitalization)
  Sender: FDA-Public Use
  Company Number: JP-B.I. PHARMACEUTICALS,INC./RIDGEFIELD-2012-BP-06534NB

PATIENT
  Sex: Male
  Weight: 73 kg

DRUGS (6)
  1. PRORENAL [Concomitant]
     Indication: LUMBAR SPINAL STENOSIS
     Dosage: 15 MCG
     Route: 048
     Dates: start: 20111017
  2. URIEF [Concomitant]
     Indication: BENIGN PROSTATIC HYPERPLASIA
     Dosage: 8 MG
     Route: 048
     Dates: start: 20111116
  3. SPIRIVA [Suspect]
     Dosage: 5 MCG
     Route: 048
     Dates: start: 20101208
  4. ADVAIR DISKUS 100/50 [Suspect]
     Indication: CHRONIC OBSTRUCTIVE PULMONARY DISEASE
     Dosage: 500 MCG
     Route: 055
     Dates: start: 20120301
  5. VALSARTAN  AND HYDROCHLOROTHIAZIDE [Concomitant]
     Indication: HYPERTENSION
     Route: 048
     Dates: start: 20111116
  6. SPIRIVA [Suspect]
     Dosage: 5 MCG
     Route: 055
     Dates: start: 20111017

REACTIONS (2)
  - ATRIAL FIBRILLATION [None]
  - EMBOLISM [None]
